FAERS Safety Report 7486225-X (Version None)
Quarter: 2011Q2

REPORT INFORMATION
  Report Type: 
  Country: None (occurrence: None)
  Receive Date: 20110517
  Receipt Date: 20110201
  Transmission Date: 20111010
  Serious: No
  Sender: FDA-Public Use
  Company Number: A0912320A

PATIENT
  Age: 61 Year
  Sex: Female

DRUGS (19)
  1. OXYCONTIN [Concomitant]
  2. COLACE [Concomitant]
  3. CALCIUM [Concomitant]
  4. LEVOTHYROXINE SODIUM [Concomitant]
  5. TOPROL-XL [Concomitant]
  6. VITAMIN D [Concomitant]
  7. GABAPENTIN [Concomitant]
  8. LUNESTA [Concomitant]
  9. CIPRO [Suspect]
     Route: 065
     Dates: start: 20110127
  10. PHENERGAN HCL [Concomitant]
  11. ONDANSETRON [Concomitant]
  12. DILAUDID [Concomitant]
  13. LOVENOX [Concomitant]
  14. PANTOPRAZOLE [Concomitant]
  15. FLEXERIL [Concomitant]
  16. SOLU-MEDROL [Concomitant]
  17. VOTRIENT [Suspect]
     Dosage: 800MG PER DAY
     Route: 048
     Dates: start: 20101216
  18. NIFEDIPINE [Concomitant]
  19. XANAX [Concomitant]

REACTIONS (1)
  - BLOOD PRESSURE INCREASED [None]
